FAERS Safety Report 7988027-4 (Version None)
Quarter: 2011Q4

REPORT INFORMATION
  Report Type: 
  Country: None (occurrence: None)
  Receive Date: 20111216
  Receipt Date: 20101130
  Transmission Date: 20120403
  Serious: Yes (Other)
  Sender: FDA-Public Use
  Company Number: US-BRISTOL-MYERS SQUIBB COMPANY-15414667

PATIENT
  Age: 12 Year
  Sex: Male

DRUGS (2)
  1. PROZAC [Concomitant]
  2. ABILIFY [Suspect]
     Dosage: DOSE INCREASED TO 5MG TWICE DAILY

REACTIONS (2)
  - APHASIA [None]
  - DYSPHAGIA [None]
